FAERS Safety Report 8153498-X (Version None)
Quarter: 2012Q1

REPORT INFORMATION
  Report Type: 
  Country: None (occurrence: None)
  Receive Date: 20120221
  Receipt Date: 20120216
  Transmission Date: 20120608
  Serious: Yes (Death, Other)
  Sender: FDA-Public Use
  Company Number: IE-ROCHE-1019728

PATIENT
  Sex: Female

DRUGS (6)
  1. METHOTREXATE [Concomitant]
     Indication: ARTHRITIS
     Route: 048
     Dates: start: 20110524, end: 20110831
  2. NU-SEALS ASPIRIN [Concomitant]
     Route: 048
  3. LEVOTHYROXINE SODIUM [Concomitant]
     Indication: HYPOTHYROIDISM
     Route: 048
  4. PREDNISOLONE [Concomitant]
     Indication: ARTHRITIS
     Route: 048
  5. ACTEMRA [Suspect]
     Indication: ARTHRITIS
     Route: 042
     Dates: start: 20110801, end: 20110831
  6. PERINDOPRIL ERBUMINE [Concomitant]
     Indication: HYPERTENSION
     Route: 048

REACTIONS (3)
  - PULMONARY FIBROSIS [None]
  - PNEUMONITIS [None]
  - DEATH [None]
